FAERS Safety Report 5001653-X (Version None)
Quarter: 2006Q2

REPORT INFORMATION
  Report Type: 
  Country: None (occurrence: None)
  Receive Date: 20060511
  Receipt Date: 20060511
  Transmission Date: 20061013
  Serious: No
  Sender: FDA-Public Use
  Company Number: None

PATIENT
  Age: 62 Year
  Sex: Female

DRUGS (2)
  1. VICODIN ES [Suspect]
     Indication: FIBROMYALGIA
     Dosage: Q6H   PO
     Route: 048
     Dates: start: 20060417, end: 20060419
  2. VICODIN ES [Suspect]
     Indication: NECK INJURY
     Dosage: Q6H   PO
     Route: 048
     Dates: start: 20060417, end: 20060419

REACTIONS (4)
  - NAUSEA [None]
  - PHARMACEUTICAL PRODUCT COMPLAINT [None]
  - THERAPEUTIC RESPONSE UNEXPECTED WITH DRUG SUBSTITUTION [None]
  - VOMITING [None]
